FAERS Safety Report 7851850-0 (Version None)
Quarter: 2011Q4

REPORT INFORMATION
  Report Type: 
  Country: None (occurrence: None)
  Receive Date: 20111026
  Receipt Date: 20111014
  Transmission Date: 20120403
  Serious: Yes (Hospitalization)
  Sender: FDA-Public Use
  Company Number: BR-NOVOPROD-337644

PATIENT

DRUGS (13)
  1. FUROSEMIDE [Concomitant]
     Dosage: 40MG (TWICE PER DAY)
     Route: 048
  2. LOSARTAN POTASSIUM [Concomitant]
     Dosage: 50MG (TWICE PER DAY)
     Route: 048
  3. ALISKIREN [Concomitant]
     Dosage: UNK
     Dates: start: 20090601
  4. SIMVASTATIN [Concomitant]
     Dosage: 20 MG, QD
  5. NOVOLIN N [Suspect]
     Indication: DIABETES MELLITUS
     Dosage: 20UI IN THE MORNING
     Route: 065
  6. ALISKIREN [Concomitant]
     Dosage: 300 MG, QD
  7. CHLORTHALIDONE [Concomitant]
     Dosage: 25 MG, QD
  8. NIFEDIPINE [Concomitant]
     Dosage: 20MG (TWICE PER DAY)
     Route: 048
  9. METFFORMIN HYDROCHLORIDE [Suspect]
     Indication: DIABETES MELLITUS
  10. ALLOPURINOL [Concomitant]
     Dosage: 100 MG, QD
  11. FUROSEMIDE [Concomitant]
     Dosage: 120 MG, UNK
  12. ENALAPRIL MALEATE [Concomitant]
     Dosage: 20MG (TWICE PER DAY)
     Route: 048
  13. AMLODIPINE [Concomitant]
     Dosage: 10 MG, QD

REACTIONS (2)
  - DIABETIC NEPHROPATHY [None]
  - BLOOD GLUCOSE INCREASED [None]
